FAERS Safety Report 21266805 (Version 1)
Quarter: 2022Q3

REPORT INFORMATION
  Report Type: Spontaneous
  Country: US (occurrence: US)
  Receive Date: 20220829
  Receipt Date: 20220829
  Transmission Date: 20221027
  Serious: Yes (Other)
  Sender: FDA-Public Use
  Company Number: US-MEDEXUS PHARMA, INC.-2022MED00355

PATIENT
  Age: 58 Year
  Sex: Male
  Weight: 95.238 kg

DRUGS (4)
  1. RASUVO [Suspect]
     Active Substance: METHOTREXATE SODIUM
     Indication: Rheumatoid arthritis
     Dosage: 25 MG, 1X/WEEKBON SUNDAYS TO THIGHS
     Dates: start: 202109, end: 20220708
  2. RASUVO [Suspect]
     Active Substance: METHOTREXATE SODIUM
     Dosage: 25 MG, 1X/WEEK ON SUNDAYS TO THIGHS
     Dates: start: 20220722
  3. UNSPECIFIED INGREDIENT [Concomitant]
     Active Substance: UNSPECIFIED INGREDIENT
  4. HUMIRA [Concomitant]
     Active Substance: ADALIMUMAB
     Dosage: UNK, 2X/MONTH (EVERY OTHER WEEK)

REACTIONS (4)
  - Shoulder operation [Recovering/Resolving]
  - Exposure via skin contact [Recovering/Resolving]
  - Device malfunction [Recovered/Resolved]
  - Device leakage [Recovered/Resolved]

NARRATIVE: CASE EVENT DATE: 20220715
